FAERS Safety Report 20160572 (Version 1)
Quarter: 2021Q4

REPORT INFORMATION
  Report Type: Spontaneous
  Country: VE (occurrence: VE)
  Receive Date: 20211208
  Receipt Date: 20211208
  Transmission Date: 20220303
  Serious: Yes (Hospitalization)
  Sender: FDA-Public Use
  Company Number: VE-BAYER-2021A260930

PATIENT
  Age: 58 Year
  Sex: Male

DRUGS (2)
  1. CHLOROQUINE [Suspect]
     Active Substance: CHLOROQUINE
     Indication: COVID-19
     Dosage: 155 MG, BID
     Route: 048
     Dates: start: 2020, end: 2020
  2. ENOXAPARIN [Concomitant]
     Active Substance: ENOXAPARIN
     Dosage: 40 MG, QD
     Route: 058
     Dates: start: 2020, end: 2020

REACTIONS (2)
  - Bipolar I disorder [Recovered/Resolved]
  - Off label use [None]

NARRATIVE: CASE EVENT DATE: 20200101
